FAERS Safety Report 5583461-4 (Version None)
Quarter: 2007Q4

REPORT INFORMATION
  Report Type: 
  Country: None (occurrence: None)
  Receive Date: 20071231
  Receipt Date: 20071219
  Transmission Date: 20080405
  Serious: Yes (Other)
  Sender: FDA-Public Use
  Company Number: 2007AP001515

PATIENT

DRUGS (1)
  1. CEFTRIAXONE [Suspect]
     Dosage: 1 GM; 1X

REACTIONS (1)
  - PYREXIA [None]
